FAERS Safety Report 6719070-0 (Version None)
Quarter: 2010Q2

REPORT INFORMATION
  Report Type: 
  Country: None (occurrence: None)
  Receive Date: 20100511
  Receipt Date: 20100430
  Transmission Date: 20101027
  Serious: Yes (Death, Other)
  Sender: FDA-Public Use
  Company Number: PL-MILLENNIUM PHARMACEUTICALS, INC.-2010-02429

PATIENT

DRUGS (4)
  1. VELCADE [Suspect]
     Indication: MULTIPLE MYELOMA
     Dosage: UNK
     Dates: start: 20070101
  2. MELPHALAN HYDROCHLORIDE [Suspect]
     Indication: MULTIPLE MYELOMA
     Dosage: UNK
     Dates: start: 20070101
  3. PREDNISONE TAB [Suspect]
     Indication: MULTIPLE MYELOMA
     Dosage: UNK
     Dates: start: 20070101
  4. THALIDOMIDE [Suspect]
     Indication: MULTIPLE MYELOMA
     Dosage: UNK
     Dates: start: 20070101

REACTIONS (3)
  - DISEASE PROGRESSION [None]
  - RESPIRATORY FAILURE [None]
  - THROMBOSIS [None]
